FAERS Safety Report 6549200-5 (Version None)
Quarter: 2010Q1

REPORT INFORMATION
  Report Type: 
  Country: None (occurrence: None)
  Receive Date: 20100119
  Receipt Date: 20100104
  Transmission Date: 20100710
  Serious: Yes (Hospitalization)
  Sender: FDA-Public Use
  Company Number: 2009AC000455

PATIENT
  Age: 80 Year
  Sex: Male

DRUGS (19)
  1. DIGOXIN [Suspect]
     Dosage: 0.125 MG; PO
     Route: 048
     Dates: start: 19870101
  2. METOPROLOL TARTRATE [Concomitant]
  3. VITAMIN B-12 [Concomitant]
  4. COLCHICINE [Concomitant]
  5. COUMADIN [Concomitant]
  6. ALLOPURINOL [Concomitant]
  7. FOLIC ACID [Concomitant]
  8. LASIX [Concomitant]
  9. GLYBURIDE [Concomitant]
  10. METFORMIN [Concomitant]
  11. FINASTERIDE [Concomitant]
  12. FUROSEMIDE [Concomitant]
  13. LOVASTATIN [Concomitant]
  14. METOPROLOL [Concomitant]
  15. ENALAPRIL MALEATE [Concomitant]
  16. FLEXERIL [Concomitant]
  17. NASALCROM [Concomitant]
  18. ALDACTONE [Concomitant]
  19. NITROGLYCERIN [Concomitant]

REACTIONS (27)
  - ARTERIOSCLEROSIS [None]
  - ARTERIOSCLEROSIS CORONARY ARTERY [None]
  - ARTHROPATHY [None]
  - BACK PAIN [None]
  - CARDIAC DISORDER [None]
  - CARDIAC PACEMAKER INSERTION [None]
  - CARDIOMEGALY [None]
  - CHOLELITHIASIS [None]
  - DIABETIC NEUROPATHY [None]
  - DIABETIC VASCULAR DISORDER [None]
  - DIPLOPIA [None]
  - DYSPNOEA [None]
  - ECONOMIC PROBLEM [None]
  - EYELID PTOSIS [None]
  - GOUT [None]
  - HEADACHE [None]
  - HIATUS HERNIA [None]
  - MULTIPLE INJURIES [None]
  - MYASTHENIA GRAVIS [None]
  - PERIPHERAL VASCULAR DISORDER [None]
  - PROSTATE CANCER [None]
  - RADICULAR PAIN [None]
  - RENAL CYST [None]
  - RENAL IMPAIRMENT [None]
  - RESPIRATORY TRACT INFECTION [None]
  - SURGERY [None]
  - UNEVALUABLE EVENT [None]
